FAERS Safety Report 8208737-3 (Version None)
Quarter: 2012Q1

REPORT INFORMATION
  Report Type: 
  Country: None (occurrence: None)
  Receive Date: 20120314
  Receipt Date: 20120308
  Transmission Date: 20120608
  Serious: Yes (Hospitalization)
  Sender: FDA-Public Use
  Company Number: US-BAYER-2012-023965

PATIENT
  Age: 16 Year
  Sex: Female
  Weight: 63 kg

DRUGS (5)
  1. YAZ [Suspect]
     Indication: PRODUCT USED FOR UNKNOWN INDICATION
     Dosage: UNK
     Dates: start: 20081118
  2. ADDERALL 5 [Concomitant]
     Dosage: 20 MG, UNK
     Route: 048
  3. YASMIN [Suspect]
     Indication: PRODUCT USED FOR UNKNOWN INDICATION
     Dosage: UNK
     Dates: start: 20081001
  4. CLARITIN [Concomitant]
  5. IBUPROFEN (ADVIL) [Concomitant]

REACTIONS (1)
  - DEEP VEIN THROMBOSIS [None]
